FAERS Safety Report 22873166 (Version 2)
Quarter: 2023Q4

REPORT INFORMATION
  Report Type: Spontaneous
  Country: DE (occurrence: DE)
  Receive Date: 20230828
  Receipt Date: 20231108
  Transmission Date: 20240110
  Serious: Yes (Death, Other)
  Sender: FDA-Public Use
  Company Number: DE-AMGEN-DEUSP2023150219

PATIENT

DRUGS (2)
  1. BEVACIZUMAB [Suspect]
     Active Substance: BEVACIZUMAB
     Indication: Hepatocellular carcinoma
     Dosage: UNK
     Route: 065
  2. ATEZOLIZUMAB [Suspect]
     Active Substance: ATEZOLIZUMAB
     Indication: Hepatocellular carcinoma
     Dosage: UNK
     Route: 065

REACTIONS (12)
  - Death [Fatal]
  - Osteomyelitis [Unknown]
  - Gastric ulcer perforation [Unknown]
  - Hepatocellular carcinoma [Unknown]
  - Thrombosis [Fatal]
  - Off label use [Unknown]
  - Therapy partial responder [Unknown]
  - Pyrexia [Unknown]
  - Proteinuria [Unknown]
  - Haemorrhage [Unknown]
  - Infection [Unknown]
  - Hyperglycaemia [Unknown]
